FAERS Safety Report 14425709 (Version 1)
Quarter: 2018Q1

REPORT INFORMATION
  Report Type: Spontaneous
  Country: US (occurrence: US)
  Receive Date: 20180122
  Receipt Date: 20180122
  Transmission Date: 20180509
  Serious: Yes (Other)
  Sender: FDA-Public Use
  Company Number: None

PATIENT
  Age: 88 Year
  Sex: Female

DRUGS (1)
  1. EYLEA [Suspect]
     Active Substance: AFLIBERCEPT
     Indication: NEOVASCULAR AGE-RELATED MACULAR DEGENERATION
     Dates: start: 20120926, end: 20180109

REACTIONS (4)
  - Eye pain [None]
  - Eye inflammation [None]
  - Visual impairment [None]
  - Endophthalmitis [None]

NARRATIVE: CASE EVENT DATE: 20180109
